FAERS Safety Report 6397258-9 (Version None)
Quarter: 2009Q4

REPORT INFORMATION
  Report Type: 
  Country: None (occurrence: None)
  Receive Date: 20091012
  Receipt Date: 20091006
  Transmission Date: 20100525
  Serious: Yes (Hospitalization)
  Sender: FDA-Public Use
  Company Number: US-MERCK-0910USA00680

PATIENT
  Age: 72 Year
  Sex: Female

DRUGS (3)
  1. JANUVIA [Suspect]
     Indication: TYPE 2 DIABETES MELLITUS
     Route: 048
     Dates: end: 20091001
  2. JANUVIA [Suspect]
     Route: 048
  3. PLAVIX [Concomitant]
     Route: 065

REACTIONS (3)
  - DIARRHOEA [None]
  - GASTRIC ULCER [None]
  - VOMITING [None]
